FAERS Safety Report 22938264 (Version 6)
Quarter: 2023Q4

REPORT INFORMATION
  Report Type: Spontaneous
  Country: JP (occurrence: JP)
  Receive Date: 20230913
  Receipt Date: 20231013
  Transmission Date: 20240109
  Serious: Yes (Death, Hospitalization, Other)
  Sender: FDA-Public Use
  Company Number: JP-UNITED THERAPEUTICS-UNT-2023-025932

PATIENT
  Age: 73 Year
  Sex: Female
  Weight: 42.889 kg

DRUGS (11)
  1. TYVASO [Suspect]
     Active Substance: TREPROSTINIL
     Indication: Pulmonary hypertension
     Dosage: 18 ?G, QID
     Dates: start: 20230719, end: 2023
  2. ATORVASTATIN [Concomitant]
     Active Substance: ATORVASTATIN
     Indication: Product used for unknown indication
     Dosage: 5 MG, QD
     Route: 065
  3. BISOPROLOL [Concomitant]
     Active Substance: BISOPROLOL\BISOPROLOL FUMARATE
     Indication: Product used for unknown indication
     Dosage: UNK
     Route: 065
  4. PREDNISOLONE [Concomitant]
     Active Substance: PREDNISOLONE
     Indication: Interstitial lung disease
     Dosage: 10 MG, QD
     Route: 065
     Dates: start: 20230314
  5. ESOMEPRAZOLE [Concomitant]
     Active Substance: ESOMEPRAZOLE
     Indication: Product used for unknown indication
     Dosage: 20 MG, QD
     Route: 065
  6. SULFAMETHOXAZOLE AND TRIMETHOPRIM [Concomitant]
     Active Substance: SULFAMETHOXAZOLE\TRIMETHOPRIM
     Indication: Product used for unknown indication
     Dosage: 1 DF, QD
     Route: 065
  7. TACROLIMUS [Concomitant]
     Active Substance: TACROLIMUS
     Indication: Interstitial lung disease
     Dosage: 2 MG, QD
     Route: 065
     Dates: start: 20230314, end: 2023
  8. TACROLIMUS [Concomitant]
     Active Substance: TACROLIMUS
     Dosage: 3 MG, QD
     Route: 065
     Dates: start: 2023
  9. PIRFENIDONE [Concomitant]
     Active Substance: PIRFENIDONE
     Indication: Interstitial lung disease
     Dosage: 200 MG, QD
     Route: 065
     Dates: start: 20220120
  10. PIRFENIDONE [Concomitant]
     Active Substance: PIRFENIDONE
     Dosage: 1200 MG, QD
     Route: 065
  11. PIRFENIDONE [Concomitant]
     Active Substance: PIRFENIDONE
     Dosage: UNK
     Route: 065
     Dates: start: 202201

REACTIONS (8)
  - Interstitial lung disease [Fatal]
  - Hypercapnia [Fatal]
  - Pneumothorax [Recovering/Resolving]
  - Coronavirus infection [Recovering/Resolving]
  - Pneumonia [Recovering/Resolving]
  - Right ventricular failure [Unknown]
  - Blood pressure decreased [Unknown]
  - Off label use [Unknown]

NARRATIVE: CASE EVENT DATE: 20230101
